FAERS Safety Report 16360313 (Version 1)
Quarter: 2019Q2

REPORT INFORMATION
  Report Type: Spontaneous
  Country: CA (occurrence: CA)
  Receive Date: 20190528
  Receipt Date: 20190528
  Transmission Date: 20190711
  Serious: Yes (Other)
  Sender: FDA-Public Use
  Company Number: CA-TEVA-2019-CA-1054788

PATIENT
  Age: 56 Year
  Sex: Female

DRUGS (1)
  1. RISEDRONATE SODIUM. [Suspect]
     Active Substance: RISEDRONATE SODIUM
     Indication: SCAPULA FRACTURE
     Route: 042

REACTIONS (2)
  - Plasma cell myeloma [Recovered/Resolved]
  - Atypical femur fracture [Recovered/Resolved]
